FAERS Safety Report 7041856-6 (Version None)
Quarter: 2010Q4

REPORT INFORMATION
  Report Type: 
  Country: None (occurrence: None)
  Receive Date: 20101013
  Receipt Date: 20100527
  Transmission Date: 20110411
  Serious: Yes (Other)
  Sender: FDA-Public Use
  Company Number: US-PFIZER INC-2010059921

PATIENT
  Sex: Male

DRUGS (1)
  1. TETRACYCLINE HCL [Suspect]

REACTIONS (3)
  - APHTHOUS STOMATITIS [None]
  - HYPERSENSITIVITY [None]
  - OROPHARYNGEAL BLISTERING [None]
